FAERS Safety Report 4341626-3 (Version None)
Quarter: 2004Q2

REPORT INFORMATION
  Report Type: 
  Country: None (occurrence: None)
  Receive Date: 20040419
  Receipt Date: 20040419
  Transmission Date: 20050107
  Serious: Yes (Other)
  Sender: FDA-Public Use
  Company Number: None

PATIENT
  Sex: Female
  Weight: 94.8018 kg

DRUGS (1)
  1. TYHROID (ARMOUR) 30 MG FOREST PHARMACEUTICALS [Suspect]
     Indication: HYPOTHYROIDISM
     Dosage: 1 PER DAY ORAL
     Route: 048
     Dates: start: 20030802, end: 20040403

REACTIONS (2)
  - PHARMACEUTICAL PRODUCT COMPLAINT [None]
  - RASH PRURITIC [None]
